FAERS Safety Report 24791309 (Version 1)
Quarter: 2024Q4

REPORT INFORMATION
  Report Type: Spontaneous
  Country: US (occurrence: US)
  Receive Date: 20241231
  Receipt Date: 20241231
  Transmission Date: 20250115
  Serious: Yes (Hospitalization)
  Sender: AUROBINDO
  Company Number: US-MLMSERVICE-20241209-PI285138-00136-1

PATIENT
  Age: 44 Year
  Sex: Female

DRUGS (4)
  1. ESCITALOPRAM [Suspect]
     Active Substance: ESCITALOPRAM OXALATE
     Indication: Bipolar disorder
     Dosage: 5 MILLIGRAM, ONCE A DAY (TWO MONTH PRIOR)
     Route: 065
  2. ESCITALOPRAM [Suspect]
     Active Substance: ESCITALOPRAM OXALATE
     Indication: Depression
  3. DESMOPRESSIN ACETATE [Suspect]
     Active Substance: DESMOPRESSIN ACETATE
     Indication: Diabetes insipidus
     Dosage: UNK (WITH FEW DOSE CHANGES)
     Route: 045
     Dates: start: 2007
  4. DESMOPRESSIN ACETATE [Suspect]
     Active Substance: DESMOPRESSIN ACETATE
     Dosage: 10 MICROGRAM, 3 TIMES A DAY (FOUR 10MCG SPRAYS IN EACH NOSTRIL THREE TIMES DAILY)
     Route: 045
     Dates: start: 2020

REACTIONS (2)
  - Polyuria [Recovering/Resolving]
  - Hyponatraemia [Recovered/Resolved]
